FAERS Safety Report 6140808-8 (Version None)
Quarter: 2009Q2

REPORT INFORMATION
  Report Type: 
  Country: None (occurrence: None)
  Receive Date: 20090402
  Receipt Date: 20090320
  Transmission Date: 20091009
  Serious: Yes (Life-Threatening, Other)
  Sender: FDA-Public Use
  Company Number: US-JNJCH-2008007885

PATIENT
  Sex: Female
  Weight: 87.1 kg

DRUGS (2)
  1. MOTRIN [Suspect]
     Dosage: UNSPECIFIED
     Route: 048
  2. LYRICA [Suspect]
     Indication: PAIN
     Dosage: 100 MG
     Route: 048
     Dates: start: 20071114, end: 20071215

REACTIONS (1)
  - PLATELET COUNT DECREASED [None]
